FAERS Safety Report 20247453 (Version 1)
Quarter: 2021Q4

REPORT INFORMATION
  Report Type: Spontaneous
  Country: US (occurrence: None)
  Receive Date: 20211228
  Receipt Date: 20211228
  Transmission Date: 20220303
  Serious: Yes (Other)
  Sender: FDA-Public Use
  Company Number: None

PATIENT
  Sex: Female

DRUGS (2)
  1. DESMOPRESSIN [Suspect]
     Active Substance: DESMOPRESSIN
     Indication: Von Willebrand^s disease
     Dosage: OTHER QUANTITY : 4 UG/ML;?OTHER FREQUENCY : ONCE 12 HRS AFTER ;?
     Route: 058
  2. TRANEX ACID [Concomitant]

REACTIONS (1)
  - Hysteroscopy [None]
